FAERS Safety Report 6220304-X (Version None)
Quarter: 2009Q2

REPORT INFORMATION
  Report Type: 
  Country: None (occurrence: None)
  Receive Date: 20090601
  Receipt Date: 20080109
  Transmission Date: 20091009
  Serious: No
  Sender: FDA-Public Use
  Company Number: AECAN200800008

PATIENT
  Age: 23 Year
  Sex: Female

DRUGS (3)
  1. HEPATITIS B IMMUNE GLOBULIN (HUMAN) [Suspect]
     Indication: ANTIVIRAL PROPHYLAXIS
     Dosage: 3.48 ML; TOTAL; IM
     Route: 030
     Dates: start: 20070128, end: 20070128
  2. ANTIDEPRESSANTS [Concomitant]
  3. MUSCLE RELAXANTS [Concomitant]

REACTIONS (8)
  - COUGH [None]
  - DYSPNOEA [None]
  - ERYTHEMA [None]
  - FACE OEDEMA [None]
  - HYPERSENSITIVITY [None]
  - OXYGEN SATURATION DECREASED [None]
  - TACHYCARDIA [None]
  - URTICARIA [None]
